FAERS Safety Report 7074198-3 (Version None)
Quarter: 2010Q4

REPORT INFORMATION
  Report Type: 
  Country: None (occurrence: None)
  Receive Date: 20101029
  Receipt Date: 20101022
  Transmission Date: 20110411
  Serious: Yes (Other)
  Sender: FDA-Public Use
  Company Number: HR-WYE-H18205010

PATIENT
  Age: 72 Year
  Sex: Female

DRUGS (4)
  1. CONTROLOC [Suspect]
     Indication: GASTRITIS
     Dates: start: 20070401, end: 20070801
  2. NEBIVOLOL HCL [Concomitant]
     Dosage: UNKNOWN
  3. EUTHYROX [Concomitant]
     Dosage: UNKNOWN
  4. LOSARTAN [Concomitant]
     Dosage: UNKNOWN

REACTIONS (2)
  - BLOOD URINE PRESENT [None]
  - PROTEINURIA [None]
